FAERS Safety Report 11186424 (Version 3)
Quarter: 2015Q3

REPORT INFORMATION
  Report Type: Spontaneous
  Country: IT (occurrence: IT)
  Receive Date: 20150613
  Receipt Date: 20150909
  Transmission Date: 20151125
  Serious: Yes (Life-Threatening)
  Sender: FDA-Public Use
  Company Number: IT-BIOGENIDEC-2015BI080895

PATIENT
  Age: 47 Year
  Sex: Female

DRUGS (1)
  1. TYSABRI [Suspect]
     Active Substance: NATALIZUMAB
     Indication: MULTIPLE SCLEROSIS
     Route: 042
     Dates: start: 20150429, end: 20150604

REACTIONS (1)
  - Generalised erythema [Recovered/Resolved]

NARRATIVE: CASE EVENT DATE: 20150604
